FAERS Safety Report 7763731-1 (Version None)
Quarter: 2011Q3

REPORT INFORMATION
  Report Type: 
  Country: None (occurrence: None)
  Receive Date: 20110921
  Receipt Date: 20091028
  Transmission Date: 20111222
  Serious: Yes (Hospitalization)
  Sender: FDA-Public Use
  Company Number: DE-RANBAXY-2009US-45827

PATIENT

DRUGS (8)
  1. BLINDED DRUG (BN0003404B) [Suspect]
     Dosage: 10 MG IN THE AM AND 5 MG IN THE PM
     Route: 065
  2. NORTRIPTYLINE HYDROCHLORIDE [Suspect]
     Indication: PRODUCT USED FOR UNKNOWN INDICATION
     Dosage: 25 MG, QD
     Route: 065
  3. BLINDED DRUG (BN0003404B) [Suspect]
     Indication: PROPHYLAXIS
     Dosage: 5 MG IN THE AM
     Route: 048
     Dates: start: 20090622
  4. BLINDED DRUG (BN0003404B) [Suspect]
     Dosage: 10 MG IN THE AM AND IN THE PM
     Route: 065
  5. PROTONIX [Suspect]
     Indication: PRODUCT USED FOR UNKNOWN INDICATION
     Dosage: 40 MG, QD
     Route: 065
  6. BLINDED DRUG (BN0003404B) [Suspect]
     Dosage: 5 MG IN THE AM AND IN THE PM
     Route: 065
  7. DIFLUCAN [Concomitant]
     Indication: PRODUCT USED FOR UNKNOWN INDICATION
     Dosage: UNK
  8. FOLIC ACID [Concomitant]
     Indication: PRODUCT USED FOR UNKNOWN INDICATION
     Dosage: UNK
     Route: 065

REACTIONS (3)
  - DIZZINESS [None]
  - DEHYDRATION [None]
  - ORTHOSTATIC HYPOTENSION [None]
